FAERS Safety Report 7555451-3 (Version None)
Quarter: 2011Q2

REPORT INFORMATION
  Report Type: 
  Country: None (occurrence: None)
  Receive Date: 20110617
  Receipt Date: 20110603
  Transmission Date: 20111010
  Serious: Yes (Death, Other)
  Sender: FDA-Public Use
  Company Number: US-ABBOTT-11P-163-0730101-00

PATIENT
  Sex: Male
  Weight: 45.4 kg

DRUGS (3)
  1. DEPAKOTE [Suspect]
     Indication: EPILEPSY
     Dosage: 3 CAPS IN AM AND 4 AT BEDTIME
     Route: 048
     Dates: start: 20000101, end: 20091212
  2. CLONIDINE HCL [Interacting]
     Indication: ABNORMAL BEHAVIOUR
     Dosage: ONE TAB IN AM, ONE TAB AT BEDTIME
     Route: 048
     Dates: start: 20091112, end: 20091212
  3. LEVETIRACETAM [Interacting]
     Indication: EPILEPSY
     Route: 048
     Dates: start: 20080101, end: 20091212

REACTIONS (7)
  - EPILEPSY [None]
  - AUTISM [None]
  - ABNORMAL BEHAVIOUR [None]
  - SEDATION [None]
  - DRUG INTERACTION [None]
  - DROWNING [None]
  - SOMNOLENCE [None]
